FAERS Safety Report 6676897-1 (Version None)
Quarter: 2010Q1

REPORT INFORMATION
  Report Type: 
  Country: None (occurrence: None)
  Receive Date: 20100331
  Receipt Date: 20090812
  Transmission Date: 20100710
  Serious: No
  Sender: FDA-Public Use
  Company Number: 2009-00474

PATIENT
  Age: 27 Year
  Sex: Male
  Weight: 104.3273 kg

DRUGS (1)
  1. ZICAM NASAL PRODUCTS [Suspect]
     Indication: NASOPHARYNGITIS
     Dosage: ON/OFF - 3 YEARS
     Dates: start: 20060101

REACTIONS (2)
  - AGEUSIA [None]
  - ANOSMIA [None]
